FAERS Safety Report 10358383 (Version 1)
Quarter: 2014Q3

REPORT INFORMATION
  Report Type: Spontaneous
  Country: US (occurrence: None)
  Receive Date: 20140730
  Receipt Date: 20140730
  Transmission Date: 20150326
  Serious: Yes (Other)
  Sender: FDA-Public Use
  Company Number: US-AIKEM-000668

PATIENT
  Age: 13 Year
  Sex: Female

DRUGS (1)
  1. GABAPENTIN. [Suspect]
     Active Substance: GABAPENTIN
     Indication: INSOMNIA
     Route: 048

REACTIONS (4)
  - Off label use [None]
  - Initial insomnia [None]
  - Abnormal behaviour [None]
  - Condition aggravated [None]
